FAERS Safety Report 9880440 (Version 1)
Quarter: 2014Q1

REPORT INFORMATION
  Report Type: Spontaneous
  Country: US (occurrence: None)
  Receive Date: 20140206
  Receipt Date: 20140206
  Transmission Date: 20141002
  Serious: Yes (Disabling)
  Sender: FDA-Public Use
  Company Number: None

PATIENT
  Age: 20 Year
  Sex: Female
  Weight: 52.16 kg

DRUGS (1)
  1. BUPROPION [Suspect]
     Indication: DEPRESSION
     Route: 048
     Dates: start: 20131221, end: 20140125

REACTIONS (13)
  - Sleep disorder [None]
  - Educational problem [None]
  - Dry skin [None]
  - Rash [None]
  - Drug hypersensitivity [None]
  - Drug ineffective [None]
  - Periorbital contusion [None]
  - Ocular hyperaemia [None]
  - Skin exfoliation [None]
  - Product substitution issue [None]
  - Tobacco abuse [None]
  - Disease recurrence [None]
  - Activities of daily living impaired [None]
